FAERS Safety Report 22324149 (Version 4)
Quarter: 2023Q4

REPORT INFORMATION
  Report Type: Report from Study
  Country: US (occurrence: US)
  Receive Date: 20230516
  Receipt Date: 20231108
  Transmission Date: 20240110
  Serious: Yes (Other)
  Sender: FDA-Public Use
  Company Number: US-002147023-NVSC2023US106500

PATIENT
  Age: 44 Year
  Sex: Female

DRUGS (1)
  1. KESIMPTA [Suspect]
     Active Substance: OFATUMUMAB
     Indication: Relapsing multiple sclerosis
     Dosage: 20 MG, QMO
     Route: 058
     Dates: start: 20211109

REACTIONS (13)
  - Multiple sclerosis relapse [Unknown]
  - Seasonal allergy [Unknown]
  - Secretion discharge [Unknown]
  - Pyrexia [Unknown]
  - Pain [Unknown]
  - Back pain [Unknown]
  - Nausea [Unknown]
  - Headache [Unknown]
  - Vascular pain [Unknown]
  - Contusion [Unknown]
  - Oral herpes [Unknown]
  - Molluscum contagiosum [Unknown]
  - Sinusitis [Unknown]

NARRATIVE: CASE EVENT DATE: 20220429
